FAERS Safety Report 17740730 (Version 1)
Quarter: 2020Q2

REPORT INFORMATION
  Report Type: Spontaneous
  Country: US (occurrence: US)
  Receive Date: 20200504
  Receipt Date: 20200504
  Transmission Date: 20200714
  Serious: Yes (Other)
  Sender: FDA-Public Use
  Company Number: None

PATIENT
  Age: 57 Year
  Sex: Female
  Weight: 67.5 kg

DRUGS (13)
  1. MULTIVITAMIN [Concomitant]
     Active Substance: VITAMINS
  2. MELOXICAM. [Concomitant]
     Active Substance: MELOXICAM
  3. CALCIUM [Concomitant]
     Active Substance: CALCIUM
  4. AIMOVIG [Suspect]
     Active Substance: ERENUMAB-AOOE
  5. EMGALITY [Suspect]
     Active Substance: GALCANEZUMAB-GNLM
  6. LEVOTHYROXIN [Concomitant]
     Active Substance: LEVOTHYROXINE
  7. CLARITON [Concomitant]
     Active Substance: UNSPECIFIED INGREDIENT
  8. COENZYME [Concomitant]
     Active Substance: UBIDECARENONE
  9. EFFEXOR [Concomitant]
     Active Substance: VENLAFAXINE HYDROCHLORIDE
  10. AJOVY [Suspect]
     Active Substance: FREMANEZUMAB-VFRM
     Indication: HEADACHE
     Dosage: ?          QUANTITY:1 INJECTION(S);?
     Route: 058
  11. BENEDRIL [Concomitant]
  12. Q10 [Concomitant]
     Active Substance: UBIDECARENONE
  13. MIGRINAL [Concomitant]

REACTIONS (4)
  - Contusion [None]
  - Hypersensitivity [None]
  - Pruritus [None]
  - Haemorrhage [None]

NARRATIVE: CASE EVENT DATE: 20190131
